FAERS Safety Report 21659416 (Version 5)
Quarter: 2023Q4

REPORT INFORMATION
  Report Type: Spontaneous
  Country: FR (occurrence: FR)
  Receive Date: 20221129
  Receipt Date: 20231016
  Transmission Date: 20240109
  Serious: Yes (Hospitalization, Other)
  Sender: FDA-Public Use
  Company Number: FR-GILEAD-2022-0606686

PATIENT
  Age: 49 Year
  Sex: Male
  Weight: 71 kg

DRUGS (4)
  1. BULEVIRTIDE [Suspect]
     Active Substance: BULEVIRTIDE
     Indication: Hepatitis D
     Dosage: 2 MG
     Route: 058
     Dates: start: 202011, end: 202306
  2. VIREAD [Suspect]
     Active Substance: TENOFOVIR DISOPROXIL FUMARATE
     Indication: Hepatitis B
     Dosage: UNK
     Route: 048
     Dates: start: 20200520
  3. PEGYLATED INTERFERON ALPHA NOS [Concomitant]
     Active Substance: PEGINTERFERON ALFA-2A OR PEGINTERFERON ALFA-2B
     Dosage: UNK
     Dates: end: 20210115
  4. PROPRANOLOL [Concomitant]
     Active Substance: PROPRANOLOL HYDROCHLORIDE
     Indication: Varices oesophageal
     Dosage: UNK
     Route: 048
     Dates: start: 20200520

REACTIONS (3)
  - Hepatitis acute [Unknown]
  - Virologic failure [Not Recovered/Not Resolved]
  - Viral load increased [Unknown]

NARRATIVE: CASE EVENT DATE: 20220801
